FAERS Safety Report 13554449 (Version 1)
Quarter: 2017Q2

REPORT INFORMATION
  Report Type: Spontaneous
  Country: IT (occurrence: IT)
  Receive Date: 20170517
  Receipt Date: 20170517
  Transmission Date: 20170830
  Serious: Yes (Life-Threatening, Hospitalization, Other)
  Sender: FDA-Public Use
  Company Number: IT-APOTEX-2017AP012213

PATIENT
  Age: 1 Month
  Sex: Female

DRUGS (1)
  1. PAROXETINE. [Suspect]
     Active Substance: PAROXETINE
     Indication: PRODUCT USED FOR UNKNOWN INDICATION
     Dosage: EQUIVALENT TO 20 MG
     Route: 065

REACTIONS (10)
  - Cyanosis [Recovering/Resolving]
  - Accidental overdose [Recovering/Resolving]
  - Clonus [Recovering/Resolving]
  - Generalised tonic-clonic seizure [Recovering/Resolving]
  - Salivary hypersecretion [Recovering/Resolving]
  - Unresponsive to stimuli [Recovering/Resolving]
  - Dyspnoea [Recovering/Resolving]
  - Wrong drug administered [Recovering/Resolving]
  - Mydriasis [Recovering/Resolving]
  - Somnolence [Recovering/Resolving]
